FAERS Safety Report 10572682 (Version 1)
Quarter: 2014Q4

REPORT INFORMATION
  Report Type: Spontaneous
  Country: US (occurrence: None)
  Receive Date: 20141107
  Receipt Date: 20141107
  Transmission Date: 20150529
  Serious: Yes (Hospitalization)
  Sender: FDA-Public Use
  Company Number: None

PATIENT
  Age: 51 Year
  Sex: Female
  Weight: 93.2 kg

DRUGS (1)
  1. IFOSFAMIDE. [Suspect]
     Active Substance: IFOSFAMIDE
     Indication: LYMPHOMA
     Route: 042
     Dates: start: 20141029, end: 20141029

REACTIONS (10)
  - Toxicity to various agents [None]
  - Dialysis [None]
  - Azotaemia [None]
  - Gaze palsy [None]
  - Stupor [None]
  - Lethargy [None]
  - Unresponsive to stimuli [None]
  - Confusional state [None]
  - Seizure [None]
  - Encephalopathy [None]

NARRATIVE: CASE EVENT DATE: 20141029
